FAERS Safety Report 9383506 (Version 4)
Quarter: 2014Q1

REPORT INFORMATION
  Report Type: Spontaneous
  Country: JP (occurrence: JP)
  Receive Date: 20130704
  Receipt Date: 20140108
  Transmission Date: 20141002
  Serious: Yes (Hospitalization, Other)
  Sender: FDA-Public Use
  Company Number: JP-AMGEN-JPNSP2013046790

PATIENT
  Age: 73 Year
  Sex: Female
  Weight: 35 kg

DRUGS (6)
  1. RANMARK [Suspect]
     Indication: METASTASES TO BONE
     Dosage: 120 MG, QD
     Route: 058
     Dates: start: 20130107, end: 20130528
  2. ZOMETA [Suspect]
     Indication: PRODUCT USED FOR UNKNOWN INDICATION
     Route: 042
     Dates: start: 20090914, end: 20121129
  3. LEVOTHYROXINE SODIUM [Concomitant]
     Dosage: 100 MG, UNK
     Route: 048
     Dates: start: 2000
  4. LEVOTHYROXINE SODIUM [Concomitant]
     Route: 048
     Dates: start: 2000
  5. ALFAROL [Concomitant]
     Route: 048
     Dates: start: 2000
  6. SODIUM BICARBONATE [Concomitant]
     Route: 048
     Dates: start: 2000

REACTIONS (1)
  - Osteonecrosis of jaw [Not Recovered/Not Resolved]
